FAERS Safety Report 16497374 (Version 1)
Quarter: 2019Q2

REPORT INFORMATION
  Report Type: Report from Study
  Country: IT (occurrence: IT)
  Receive Date: 20190628
  Receipt Date: 20190628
  Transmission Date: 20190711
  Serious: Yes (Hospitalization)
  Sender: FDA-Public Use
  Company Number: IT-BAYER-2019-120983

PATIENT
  Age: 90 Year
  Sex: Male

DRUGS (6)
  1. CIPROXIN 500 MG COMPRESSE RIVESTITE CON FILM [Suspect]
     Active Substance: CIPROFLOXACIN
     Indication: PROSTATITIS
     Dosage: 500 MG, QD
     Route: 048
     Dates: start: 20190603, end: 20190608
  2. MIRAPEXIN E M [Concomitant]
  3. LASIX [Concomitant]
     Active Substance: FUROSEMIDE
  4. PREFOLIC [Concomitant]
     Active Substance: LEUCOVORIN CALCIUM
  5. ZYLORIC [Concomitant]
     Active Substance: ALLOPURINOL
  6. ASCRIPTIN [Concomitant]
     Active Substance: ASPIRIN

REACTIONS (3)
  - Cholecystitis [Recovering/Resolving]
  - Pancreatitis acute [Recovering/Resolving]
  - Jaundice cholestatic [Recovering/Resolving]

NARRATIVE: CASE EVENT DATE: 20190608
